FAERS Safety Report 14774332 (Version 2)
Quarter: 2018Q2

REPORT INFORMATION
  Report Type: Report from Study
  Country: None (occurrence: US)
  Receive Date: 20180418
  Receipt Date: 20180427
  Transmission Date: 20180711
  Serious: Yes (Death, Hospitalization, Other)
  Sender: FDA-Public Use
  Company Number: US-ABBVIE-18P-163-2326011-00

PATIENT
  Sex: Male
  Weight: 44.49 kg

DRUGS (1)
  1. CREON [Suspect]
     Active Substance: PANCRELIPASE AMYLASE\PANCRELIPASE LIPASE\PANCRELIPASE PROTEASE
     Indication: PANCREATIC CARCINOMA
     Route: 048
     Dates: start: 201705, end: 201708

REACTIONS (6)
  - Septic shock [Recovered/Resolved]
  - Dysphagia [Not Recovered/Not Resolved]
  - Cachexia [Fatal]
  - Cerebrovascular accident [Fatal]
  - Pulmonary oedema [Recovered/Resolved]
  - Pancreatic carcinoma metastatic [Fatal]

NARRATIVE: CASE EVENT DATE: 2017
